FAERS Safety Report 7202274-0 (Version None)
Quarter: 2010Q4

REPORT INFORMATION
  Report Type: 
  Country: None (occurrence: None)
  Receive Date: 20101229
  Receipt Date: 20101222
  Transmission Date: 20110411
  Serious: Yes (Hospitalization)
  Sender: FDA-Public Use
  Company Number: US-B.I. PHARMACEUTICALS,INC./RIDGEFIELD-2010-BP-14995BP

PATIENT
  Sex: Female

DRUGS (12)
  1. PRADAXA [Suspect]
     Indication: ATRIAL FIBRILLATION
     Dosage: 300 MG
     Route: 048
     Dates: start: 20101208, end: 20101212
  2. LOPRESSOR [Concomitant]
     Indication: ATRIAL FIBRILLATION
  3. LISINOPRIL [Concomitant]
     Indication: HYPERTENSION
  4. CYCLOSPORINE [Concomitant]
     Indication: RENAL TRANSPLANT
  5. CELLCEPT [Concomitant]
     Indication: RENAL TRANSPLANT
  6. PREDNISONE [Concomitant]
     Indication: RENAL TRANSPLANT
  7. LOSARTAN POTASSIUM [Concomitant]
     Indication: HYPERTENSION
  8. NEXIUM [Concomitant]
     Indication: GASTROOESOPHAGEAL REFLUX DISEASE
  9. INSULIN PUMP [Concomitant]
     Indication: DIABETES MELLITUS
  10. LIPITOR [Concomitant]
     Indication: PROPHYLAXIS
  11. CLONIDINE [Concomitant]
     Indication: HYPERTENSION
  12. AMLODIPINE [Concomitant]
     Indication: HYPERTENSION

REACTIONS (2)
  - GINGIVAL BLEEDING [None]
  - HAEMATOCRIT DECREASED [None]
